FAERS Safety Report 5104089-6 (Version None)
Quarter: 2006Q3

REPORT INFORMATION
  Report Type: 
  Country: None (occurrence: None)
  Receive Date: 20060913
  Receipt Date: 20060905
  Transmission Date: 20061208
  Serious: Yes (Hospitalization)
  Sender: FDA-Public Use
  Company Number: CH-BOEHRINGER INGELHEIM PHARMACEUTICALS, INC.-2006-DE-04754SI

PATIENT
  Sex: Female
  Weight: 57 kg

DRUGS (7)
  1. SPIRIVA [Suspect]
     Indication: CHRONIC OBSTRUCTIVE PULMONARY DISEASE
     Route: 055
     Dates: start: 20040909, end: 20041103
  2. SPIRIVA [Suspect]
     Route: 055
     Dates: start: 20050515, end: 20050515
  3. SPIRIVA [Suspect]
     Route: 055
     Dates: start: 20050522, end: 20050522
  4. EUTHYROX [Concomitant]
     Indication: HYPOTHYROIDISM
     Route: 048
  5. REMERON [Concomitant]
     Route: 048
  6. XANAX RETARD [Concomitant]
     Route: 048
  7. LEXOTANIL [Concomitant]
     Route: 048

REACTIONS (2)
  - DYSKINESIA [None]
  - TREMOR [None]
